FAERS Safety Report 18907525 (Version 1)
Quarter: 2021Q1

REPORT INFORMATION
  Report Type: Spontaneous
  Country: US (occurrence: US)
  Receive Date: 20210217
  Receipt Date: 20210217
  Transmission Date: 20210420
  Serious: Yes (Hospitalization)
  Sender: FDA-Public Use
  Company Number: US-JNJFOC-20210217487

PATIENT
  Age: 32 Year
  Sex: Male

DRUGS (1)
  1. TYLENOL EXTRA STRENGTH [Suspect]
     Active Substance: ACETAMINOPHEN
     Indication: PAIN IN JAW
     Dosage: 2G EVERY 6H?8 G TYLENOL OVER 24 H
     Route: 048
     Dates: start: 20210202

REACTIONS (7)
  - Prothrombin time prolonged [Unknown]
  - Abdominal pain [Unknown]
  - Alanine aminotransferase increased [Unknown]
  - International normalised ratio increased [Unknown]
  - Nausea [Unknown]
  - Aspartate aminotransferase increased [Unknown]
  - Overdose [Unknown]

NARRATIVE: CASE EVENT DATE: 20210202
